FAERS Safety Report 18298502 (Version 2)
Quarter: 2020Q4

REPORT INFORMATION
  Report Type: Spontaneous
  Country: FR (occurrence: FR)
  Receive Date: 20200922
  Receipt Date: 20201014
  Transmission Date: 20210113
  Serious: Yes (Hospitalization)
  Sender: FDA-Public Use
  Company Number: NVSC2020FR251088

PATIENT
  Age: 85 Year
  Sex: Female
  Weight: 68 kg

DRUGS (3)
  1. IBUPROFEN. [Interacting]
     Active Substance: IBUPROFEN
     Dosage: 1200 MG, QD
     Route: 048
     Dates: start: 20200824, end: 20200824
  2. INNOHEP [Interacting]
     Active Substance: TINZAPARIN SODIUM
     Indication: ANTICOAGULANT THERAPY
     Dosage: 10 000 UI / 0,5 ML
     Route: 058
     Dates: start: 202008, end: 20200824
  3. IBUPROFEN. [Suspect]
     Active Substance: IBUPROFEN
     Indication: NECK PAIN
     Dosage: 10 000 UI / 0,5 ML
     Route: 048
     Dates: start: 20200823, end: 20200823

REACTIONS (5)
  - Drug interaction [Unknown]
  - Choking sensation [Recovering/Resolving]
  - Condition aggravated [Recovering/Resolving]
  - Neck pain [Recovering/Resolving]
  - Post procedural haematoma [Recovered/Resolved]

NARRATIVE: CASE EVENT DATE: 20200824
